FAERS Safety Report 9352067 (Version 2)
Quarter: 2013Q2

REPORT INFORMATION
  Report Type: Spontaneous
  Country: HR (occurrence: None)
  Receive Date: 20130612
  Receipt Date: 20130628
  Transmission Date: 20140414
  Serious: Yes (Hospitalization)
  Sender: FDA-Public Use
  Company Number: NSR_01154_2013

PATIENT
  Age: 70 Year
  Sex: Female

DRUGS (2)
  1. VENLAFAXINE [Suspect]
     Indication: MAJOR DEPRESSION
     Dosage: (150 MG, 2X75 MG))
     Dates: start: 2007
  2. ALPRAZOLAM [Concomitant]

REACTIONS (20)
  - Apathy [None]
  - Asthenia [None]
  - Abulia [None]
  - Depression [None]
  - Asthenia [None]
  - Blood pressure increased [None]
  - Hyperhidrosis [None]
  - Nausea [None]
  - Palpitations [None]
  - Transient ischaemic attack [None]
  - Cerebrovascular accident [None]
  - Poisoning deliberate [None]
  - Withdrawal syndrome [None]
  - Treatment noncompliance [None]
  - Gait disturbance [None]
  - Fear [None]
  - Feeling hot [None]
  - Heart rate increased [None]
  - Vertigo [None]
  - Therapy cessation [None]
